FAERS Safety Report 9656529 (Version 1)
Quarter: 2013Q4

REPORT INFORMATION
  Report Type: Spontaneous
  Country: US (occurrence: US)
  Receive Date: 20131030
  Receipt Date: 20131030
  Transmission Date: 20140711
  Serious: Yes (Death)
  Sender: FDA-Public Use
  Company Number: US-BAYER-2013-128880

PATIENT
  Sex: Female

DRUGS (1)
  1. STIVARGA [Suspect]
     Indication: RECTOSIGMOID CANCER
     Dosage: 160 MG, QD(DAYS 1-21 OF 28)
     Route: 048
     Dates: start: 20130822

REACTIONS (1)
  - Rectosigmoid cancer [Fatal]
